FAERS Safety Report 9301121 (Version 1)
Quarter: 2013Q2

REPORT INFORMATION
  Report Type: Spontaneous
  Country: US (occurrence: US)
  Receive Date: 20130521
  Receipt Date: 20130521
  Transmission Date: 20140414
  Serious: Yes (Hospitalization)
  Sender: FDA-Public Use
  Company Number: US-GLAXOSMITHKLINE-A0791347A

PATIENT
  Age: 55 Year
  Sex: 0

DRUGS (1)
  1. AVANDIA [Suspect]
     Indication: DIABETES MELLITUS
     Dosage: 8MG PER DAY
     Route: 048
     Dates: end: 20070706

REACTIONS (4)
  - Cardiac failure congestive [Unknown]
  - Chest pain [Unknown]
  - Peripheral arterial occlusive disease [Unknown]
  - Dyspnoea [Unknown]
